FAERS Safety Report 5917553-4 (Version None)
Quarter: 2008Q4

REPORT INFORMATION
  Report Type: 
  Country: None (occurrence: None)
  Receive Date: 20081010
  Receipt Date: 20081010
  Transmission Date: 20090506
  Serious: Yes (Other)
  Sender: FDA-Public Use
  Company Number: None

PATIENT
  Sex: Male
  Weight: 78.0187 kg

DRUGS (1)
  1. BCG LIVE - 81MGS - SANOFI PASTEUR [Suspect]
     Indication: BLADDER NEOPLASM
     Dosage: 81MG WEEKLY INTRAVESIC
     Route: 043
     Dates: start: 20080917

REACTIONS (6)
  - ARTHRALGIA [None]
  - FATIGUE [None]
  - JOINT SWELLING [None]
  - MYALGIA [None]
  - OCULAR HYPERAEMIA [None]
  - PYREXIA [None]
